FAERS Safety Report 8616279-6 (Version None)
Quarter: 2012Q3

REPORT INFORMATION
  Report Type: 
  Country: None (occurrence: None)
  Receive Date: 20120815
  Receipt Date: 20120815
  Transmission Date: 20120928
  Serious: No
  Sender: FDA-Public Use
  Company Number: None

PATIENT
  Age: 58 Year
  Sex: Female
  Weight: 106.5953 kg

DRUGS (1)
  1. INFED [Suspect]
     Indication: IRON DEFICIENCY ANAEMIA
     Dosage: 25MG ONCE IV BOLUS
     Route: 040
     Dates: start: 20120726, end: 20120726

REACTIONS (4)
  - COUGH [None]
  - THROAT TIGHTNESS [None]
  - THROAT IRRITATION [None]
  - IMMEDIATE POST-INJECTION REACTION [None]
